FAERS Safety Report 6100489-6 (Version None)
Quarter: 2009Q1

REPORT INFORMATION
  Report Type: 
  Country: None (occurrence: None)
  Receive Date: 20090303
  Receipt Date: 20090218
  Transmission Date: 20090719
  Serious: Yes (Other)
  Sender: FDA-Public Use
  Company Number: US-AVENTIS-200911408US

PATIENT
  Sex: Female
  Weight: 120.2 kg

DRUGS (1)
  1. TAXOTERE [Suspect]
     Route: 042
     Dates: start: 20090203

REACTIONS (3)
  - ABASIA [None]
  - RASH [None]
  - SWOLLEN TONGUE [None]
